FAERS Safety Report 19474258 (Version 1)
Quarter: 2021Q2

REPORT INFORMATION
  Report Type: Spontaneous
  Country: NL (occurrence: NL)
  Receive Date: 20210630
  Receipt Date: 20210630
  Transmission Date: 20210717
  Serious: Yes (Life-Threatening, Other)
  Sender: FDA-Public Use
  Company Number: NL-ROCHE-2858309

PATIENT
  Age: 66 Year
  Sex: Female
  Weight: 98 kg

DRUGS (4)
  1. KADCYLA [Suspect]
     Active Substance: ADO-TRASTUZUMAB EMTANSINE
     Indication: BREAST CANCER
     Dosage: INTRAVENEUS, DOSERING 3,6 MG/KG IEDERE 21 DAGEN,
     Route: 042
     Dates: start: 202101, end: 20210611
  2. AMITRIPTYLINE HCL [Concomitant]
     Active Substance: AMITRIPTYLINE
     Dosage: TABLET, 25 MG (MILLIGRAM)
  3. TAMOXIFEN [Suspect]
     Active Substance: TAMOXIFEN
     Indication: BREAST CANCER
     Dosage: TABLET, 20 MG (MILLIGRAM)
     Route: 065
  4. PREDNISON [Suspect]
     Active Substance: PREDNISONE
     Indication: PRODUCT USED FOR UNKNOWN INDICATION
     Dosage: 1DD 15 MG, AFBOUWSCHEMA VAN 40 MG (START MAART 2021)
     Route: 065
     Dates: start: 202103

REACTIONS (3)
  - Pulmonary embolism [Unknown]
  - Pneumocystis jirovecii pneumonia [Recovering/Resolving]
  - Radiation pneumonitis [Unknown]

NARRATIVE: CASE EVENT DATE: 202103
